FAERS Safety Report 13829390 (Version 2)
Quarter: 2017Q3

REPORT INFORMATION
  Report Type: Report from Study
  Country: JP (occurrence: JP)
  Receive Date: 20170803
  Receipt Date: 20170928
  Transmission Date: 20171127
  Serious: Yes (Other)
  Sender: FDA-Public Use
  Company Number: JP-INCYTE CORPORATION-2017IN006051

PATIENT

DRUGS (7)
  1. JAKAVI [Suspect]
     Active Substance: RUXOLITINIB
     Indication: POLYCYTHAEMIA VERA
     Dosage: 5 MG, BID
     Route: 048
     Dates: start: 20151026, end: 20151108
  2. JAKAVI [Suspect]
     Active Substance: RUXOLITINIB
     Dosage: 12.5 MG, BID
     Route: 048
     Dates: start: 20160219, end: 20160324
  3. MERCAPTOPURINE. [Concomitant]
     Active Substance: MERCAPTOPURINE
     Indication: POLYCYTHAEMIA VERA
     Dosage: 20 MG, UNK
     Route: 048
     Dates: start: 20120613, end: 201511
  4. JAKAVI [Suspect]
     Active Substance: RUXOLITINIB
     Dosage: 15 MG, BID
     Route: 048
     Dates: start: 20160107, end: 20160125
  5. JAKAVI [Suspect]
     Active Substance: RUXOLITINIB
     Dosage: 15 MG, BID
     Route: 048
     Dates: start: 20160325
  6. JAKAVI [Suspect]
     Active Substance: RUXOLITINIB
     Dosage: 10 MG, BID
     Route: 048
     Dates: start: 20151109, end: 20160106
  7. JAKAVI [Suspect]
     Active Substance: RUXOLITINIB
     Dosage: 10 MG, BID
     Route: 048
     Dates: start: 20160126, end: 20160218

REACTIONS (3)
  - Second primary malignancy [Recovered/Resolved]
  - Oesophageal squamous cell carcinoma [Recovered/Resolved]
  - Gastric ulcer haemorrhage [Recovering/Resolving]

NARRATIVE: CASE EVENT DATE: 20160125
